FAERS Safety Report 9704674 (Version 2)
Quarter: 2013Q4

REPORT INFORMATION
  Report Type: Spontaneous
  Country: FI (occurrence: FI)
  Receive Date: 20131122
  Receipt Date: 20131122
  Transmission Date: 20140711
  Serious: Yes (Death, Hospitalization)
  Sender: FDA-Public Use
  Company Number: FI-TEVA-383034USA

PATIENT
  Age: 73 Year
  Sex: Female

DRUGS (2)
  1. LEVACT [Suspect]
     Indication: NON-HODGKIN^S LYMPHOMA
     Route: 042
     Dates: start: 201107, end: 201112
  2. MABTHERA [Suspect]
     Indication: NON-HODGKIN^S LYMPHOMA UNSPECIFIED HISTOLOGY INDOLENT
     Route: 042
     Dates: start: 201111, end: 201112

REACTIONS (1)
  - Progressive multifocal leukoencephalopathy [Fatal]
